FAERS Safety Report 4659267-7 (Version None)
Quarter: 2005Q2

REPORT INFORMATION
  Report Type: 
  Country: None (occurrence: None)
  Receive Date: 20050510
  Receipt Date: 20050428
  Transmission Date: 20051028
  Serious: Yes (Other)
  Sender: FDA-Public Use
  Company Number: 2005-0008289

PATIENT
  Sex: Male

DRUGS (2)
  1. EMTRIVA [Suspect]
     Indication: HIV INFECTION
  2. VIREAD [Suspect]
     Indication: HIV INFECTION

REACTIONS (3)
  - MOUTH ULCERATION [None]
  - PYREXIA [None]
  - RASH GENERALISED [None]
